FAERS Safety Report 14879508 (Version 3)
Quarter: 2018Q3

REPORT INFORMATION
  Report Type: Spontaneous
  Country: BR (occurrence: BR)
  Receive Date: 20180511
  Receipt Date: 20180814
  Transmission Date: 20181010
  Serious: Yes (Hospitalization)
  Sender: FDA-Public Use
  Company Number: BR-B.I. PHARMACEUTICALS,INC./RIDGEFIELD-2018-BI-025258

PATIENT
  Sex: Male
  Weight: 92 kg

DRUGS (5)
  1. AAS [Concomitant]
     Active Substance: ASPIRIN
     Indication: HYPERTENSION
     Route: 048
     Dates: start: 2012
  2. LOSARTANA [Concomitant]
     Active Substance: LOSARTAN
     Indication: HYPERTENSION
     Route: 048
     Dates: start: 2012
  3. APRESOLINA [Concomitant]
     Active Substance: HYDRALAZINE HYDROCHLORIDE
     Indication: HYPERTENSION
     Route: 048
     Dates: start: 2012
  4. ATENSINA [Suspect]
     Active Substance: CLONIDINE
     Indication: HYPERTENSION
     Route: 048
     Dates: start: 2017, end: 201804
  5. BALCOR [Concomitant]
     Indication: HYPERTENSION
     Route: 048
     Dates: start: 2012

REACTIONS (2)
  - Hypertension [Recovered/Resolved]
  - Product supply issue [Recovered/Resolved]
